FAERS Safety Report 5060086-0 (Version None)
Quarter: 2006Q2

REPORT INFORMATION
  Report Type: 
  Country: None (occurrence: None)
  Receive Date: 20060630
  Receipt Date: 20060323
  Transmission Date: 20061013
  Serious: Yes (Other)
  Sender: FDA-Public Use
  Company Number: 441876

PATIENT
  Age: 63 Year
  Sex: Male
  Weight: 89.8 kg

DRUGS (6)
  1. CELLCEPT [Suspect]
     Indication: GLOMERULONEPHRITIS CHRONIC
     Dosage: 500 MG 2 PER DAY ORAL
     Route: 048
     Dates: start: 20060209
  2. PREDNISONE TAB [Concomitant]
  3. LISINOPRIL [Concomitant]
  4. FUROSEMIDE [Concomitant]
  5. LIPITOR [Concomitant]
  6. BACTRIM [Concomitant]

REACTIONS (11)
  - DYSGEUSIA [None]
  - GASTROOESOPHAGEAL REFLUX DISEASE [None]
  - HYPOAESTHESIA [None]
  - HYPOAESTHESIA ORAL [None]
  - ORAL CANDIDIASIS [None]
  - ORAL MUCOSAL BLISTERING [None]
  - PAIN IN EXTREMITY [None]
  - PERIPHERAL COLDNESS [None]
  - SKIN DISCOLOURATION [None]
  - TONGUE ULCERATION [None]
  - VASCULITIS [None]
